FAERS Safety Report 8203174-X (Version None)
Quarter: 2012Q1

REPORT INFORMATION
  Report Type: 
  Country: None (occurrence: None)
  Receive Date: 20120312
  Receipt Date: 20120305
  Transmission Date: 20120608
  Serious: Yes (Other)
  Sender: FDA-Public Use
  Company Number: JP-B.I. PHARMACEUTICALS,INC./RIDGEFIELD-2012-BP-04273NB

PATIENT
  Sex: Male

DRUGS (1)
  1. TRAZENTA [Suspect]
     Indication: DIABETES MELLITUS

REACTIONS (2)
  - COMA [None]
  - MUSCULOSKELETAL DISCOMFORT [None]
